FAERS Safety Report 9338244 (Version 1)
Quarter: 2013Q2

REPORT INFORMATION
  Report Type: Spontaneous
  Country: US (occurrence: US)
  Receive Date: 20130610
  Receipt Date: 20130610
  Transmission Date: 20140414
  Serious: Yes (Other)
  Sender: FDA-Public Use
  Company Number: US-GLENMARK GENERICS INC.-2013GMK005854

PATIENT
  Sex: Male

DRUGS (1)
  1. TERBINAFINE HCL [Suspect]
     Indication: PRODUCT USED FOR UNKNOWN INDICATION
     Dosage: UNK
     Route: 048

REACTIONS (4)
  - Acute generalised exanthematous pustulosis [Recovered/Resolved with Sequelae]
  - Dermatitis exfoliative [Recovered/Resolved with Sequelae]
  - Skin exfoliation [Recovered/Resolved with Sequelae]
  - Rash pustular [Recovered/Resolved with Sequelae]
